FAERS Safety Report 11337974 (Version 1)
Quarter: 2015Q3

REPORT INFORMATION
  Report Type: Spontaneous
  Country: US (occurrence: US)
  Receive Date: 20150803
  Receipt Date: 20150803
  Transmission Date: 20151125
  Serious: No
  Sender: FDA-Public Use
  Company Number: US-ELI_LILLY_AND_COMPANY-US201004001806

PATIENT
  Age: 9 Year
  Sex: Male
  Weight: 27.21 kg

DRUGS (1)
  1. ZYPREXA [Suspect]
     Active Substance: OLANZAPINE
     Indication: LEARNING DISORDER
     Dosage: 5 MG, EACH EVENING
     Dates: start: 201003

REACTIONS (4)
  - Suicidal ideation [Unknown]
  - Hypersomnia [Unknown]
  - Off label use [Unknown]
  - Somnolence [Unknown]

NARRATIVE: CASE EVENT DATE: 2010
